FAERS Safety Report 10853786 (Version 1)
Quarter: 2015Q1

REPORT INFORMATION
  Report Type: Spontaneous
  Country: US (occurrence: None)
  Receive Date: 20150218
  Receipt Date: 20150218
  Transmission Date: 20150721
  Serious: Yes (Disabling)
  Sender: FDA-Public Use
  Company Number: None

PATIENT
  Age: 23 Year
  Sex: Female
  Weight: 92.99 kg

DRUGS (1)
  1. XYREM [Suspect]
     Active Substance: SODIUM OXYBATE
     Indication: SOMNOLENCE
     Dosage: 2 TIMES AT NIGHT
     Route: 048
     Dates: start: 20150101, end: 20150213

REACTIONS (3)
  - Anxiety [None]
  - Panic attack [None]
  - Psychomotor skills impaired [None]

NARRATIVE: CASE EVENT DATE: 20150212
